FAERS Safety Report 8774584 (Version 2)
Quarter: 2012Q4

REPORT INFORMATION
  Report Type: 
  Country: US (occurrence: US)
  Receive Date: 20120907
  Receipt Date: 20120920
  Transmission Date: 20130627
  Serious: Yes (Hospitalization)
  Sender: FDA-Public Use
  Company Number: US-009507513-1208USA012218

PATIENT
  Sex: Male

DRUGS (10)
  1. REBETOL [Suspect]
     Route: 048
  2. PEGASYS [Suspect]
  3. PRILOSEC [Concomitant]
     Route: 048
  4. HUMALOG [Concomitant]
  5. VICODIN [Concomitant]
  6. TRILEPTAL [Concomitant]
  7. LANTUS [Concomitant]
  8. SEROQUEL [Concomitant]
  9. TRAZODONE HYDROCHLORIDE [Concomitant]
  10. CELEXA [Concomitant]

REACTIONS (1)
  - Adverse event [Unknown]
